FAERS Safety Report 4927791-5 (Version None)
Quarter: 2006Q1

REPORT INFORMATION
  Report Type: 
  Country: None (occurrence: None)
  Receive Date: 20060222
  Receipt Date: 20060214
  Transmission Date: 20060701
  Serious: Yes (Hospitalization)
  Sender: FDA-Public Use
  Company Number: FEI2006-0218

PATIENT
  Age: 25 Year
  Sex: Female
  Weight: 74.8435 kg

DRUGS (1)
  1. INTRAUTERINE COPPER CONTRACEPTIVE [Suspect]
     Indication: CONTRACEPTION
     Dosage: INTRA-UTERINE
     Route: 015
     Dates: start: 20040624, end: 20050624

REACTIONS (3)
  - OVARIAN CYST [None]
  - PELVIC INFLAMMATORY DISEASE [None]
  - TUBO-OVARIAN ABSCESS [None]
